FAERS Safety Report 8135946-4 (Version None)
Quarter: 2012Q1

REPORT INFORMATION
  Report Type: 
  Country: None (occurrence: None)
  Receive Date: 20120214
  Receipt Date: 20120213
  Transmission Date: 20120608
  Serious: Yes (Hospitalization, Other)
  Sender: FDA-Public Use
  Company Number: US-PFIZER INC-2012023391

PATIENT
  Sex: Female

DRUGS (5)
  1. EFFEXOR XR [Suspect]
     Indication: ANXIETY
     Dosage: 150 MG, 2X/DAY
     Route: 048
     Dates: start: 20080101
  2. LAMICTAL [Suspect]
     Indication: CONVULSION
     Dosage: UNK
  3. FOLIC ACID [Concomitant]
     Indication: THALASSAEMIA BETA
     Dosage: UNK
  4. TOPAMAX [Suspect]
     Indication: CONVULSION
     Dosage: UNK
  5. EFFEXOR XR [Suspect]
     Indication: DEPRESSION
     Dosage: 150 MG, UNK

REACTIONS (6)
  - PAIN [None]
  - MUSCLE SPASMS [None]
  - INSOMNIA [None]
  - DIVERTICULITIS [None]
  - GRAND MAL CONVULSION [None]
  - INCORRECT DOSE ADMINISTERED [None]
